FAERS Safety Report 5785899-9 (Version None)
Quarter: 2008Q2

REPORT INFORMATION
  Report Type: 
  Country: None (occurrence: None)
  Receive Date: 20080624
  Receipt Date: 20070626
  Transmission Date: 20081010
  Serious: No
  Sender: FDA-Public Use
  Company Number: US-ASTRAZENECA-2007UW15155

PATIENT
  Age: 74 Year
  Sex: Male
  Weight: 88.5 kg

DRUGS (4)
  1. PULMICORT RESPULES [Suspect]
     Indication: CHRONIC OBSTRUCTIVE PULMONARY DISEASE
     Route: 055
  2. DUONEB [Concomitant]
  3. NEXIUM [Concomitant]
     Route: 048
  4. LOVASTATIN [Concomitant]

REACTIONS (2)
  - CHAPPED LIPS [None]
  - ORAL PAIN [None]
